FAERS Safety Report 6473365-7 (Version None)
Quarter: 2009Q4

REPORT INFORMATION
  Report Type: 
  Country: None (occurrence: None)
  Receive Date: 20091204
  Receipt Date: 20091202
  Transmission Date: 20100525
  Serious: No
  Sender: FDA-Public Use
  Company Number: US-B.I. PHARMACEUTICALS,INC./RIDGEFIELD-2009-BP-13938BP

PATIENT
  Sex: Female

DRUGS (1)
  1. SPIRIVA [Suspect]
     Indication: ALLERGY TO ANIMAL
     Dosage: 18 MCG
     Route: 055
     Dates: start: 20091124

REACTIONS (1)
  - DRUG INEFFECTIVE [None]
